FAERS Safety Report 8775464 (Version 1)
Quarter: 2012Q4

REPORT INFORMATION
  Report Type: 
  Country: US (occurrence: US)
  Receive Date: 20120910
  Receipt Date: 20120910
  Transmission Date: 20130627
  Serious: Yes (Life-Threatening)
  Sender: FDA-Public Use
  Company Number: 2012SP002439

PATIENT
  Age: 42 Year
  Sex: Male
  Weight: 90 kg

DRUGS (3)
  1. LATUDA [Suspect]
     Indication: SCHIZOPHRENIA
     Route: 048
     Dates: start: 20120206, end: 20120208
  2. LATUDA [Suspect]
     Indication: PSYCHOTIC DISORDER
     Route: 048
     Dates: start: 20120206, end: 20120208
  3. LEXAPRO [Concomitant]
     Indication: PRODUCT USED FOR UNKNOWN INDICATION
     Dates: start: 20090330

REACTIONS (1)
  - Hypersensitivity [Recovered/Resolved]
